FAERS Safety Report 17354312 (Version 1)
Quarter: 2020Q1

REPORT INFORMATION
  Report Type: Spontaneous
  Country: TH (occurrence: TH)
  Receive Date: 20200131
  Receipt Date: 20200131
  Transmission Date: 20200409
  Serious: Yes (Hospitalization, Other)
  Sender: FDA-Public Use
  Company Number: TH-QUAGEN PHARMA LLC-2020QUALIT00006

PATIENT

DRUGS (2)
  1. PROMETHAZINE HYDROCHLORIDE TABLETS, 12.5 MG [Suspect]
     Active Substance: PROMETHAZINE HYDROCHLORIDE
  2. TRAMADOL. [Interacting]
     Active Substance: TRAMADOL

REACTIONS (2)
  - Serotonin syndrome [Unknown]
  - Drug interaction [Unknown]
